FAERS Safety Report 8933935 (Version 1)
Quarter: 2012Q4

REPORT INFORMATION
  Report Type: 
  Country: US (occurrence: US)
  Receive Date: 20121129
  Receipt Date: 20121129
  Transmission Date: 20130627
  Serious: No
  Sender: FDA-Public Use
  Company Number: US-PFIZER INC-2012298086

PATIENT
  Sex: Female

DRUGS (2)
  1. QUINAPRIL HCL [Suspect]
     Dosage: 5 mg, UNK
  2. ACCUPRIL [Concomitant]
     Dosage: 5 mg, UNK

REACTIONS (1)
  - Malaise [Unknown]
